FAERS Safety Report 4509151-4 (Version None)
Quarter: 2004Q4

REPORT INFORMATION
  Report Type: 
  Country: None (occurrence: None)
  Receive Date: 20041025
  Receipt Date: 20040708
  Transmission Date: 20050328
  Serious: Yes (Hospitalization)
  Sender: FDA-Public Use
  Company Number: US-JNJFOC-20040604835

PATIENT
  Age: 42 Year
  Sex: Male
  Weight: 100.6985 kg

DRUGS (4)
  1. REMICADE [Suspect]
     Indication: CROHN'S DISEASE
     Dosage: INTRAVENOUS
     Route: 042
     Dates: start: 20000101
  2. REMICADE [Suspect]
     Indication: CROHN'S DISEASE
     Dosage: INTRAVENOUS
     Route: 042
     Dates: start: 20030130
  3. TYLENOL [Concomitant]
  4. DIPHENHYDRAMINE HCL [Concomitant]

REACTIONS (7)
  - DYSPEPSIA [None]
  - HAEMATOCHEZIA [None]
  - INSOMNIA [None]
  - NIGHT SWEATS [None]
  - PAIN [None]
  - SERUM SICKNESS [None]
  - TYPE IV HYPERSENSITIVITY REACTION [None]
